FAERS Safety Report 17540746 (Version 1)
Quarter: 2020Q1

REPORT INFORMATION
  Report Type: Report from Study
  Country: CA (occurrence: CA)
  Receive Date: 20200313
  Receipt Date: 20200313
  Transmission Date: 20200409
  Serious: Yes (Other)
  Sender: FDA-Public Use
  Company Number: CA-AMGEN-CANSL2020041911

PATIENT
  Age: 78 Year
  Sex: Male

DRUGS (15)
  1. VERAPAMIL [Suspect]
     Active Substance: VERAPAMIL HYDROCHLORIDE
     Indication: MIGRAINE
     Route: 065
  2. AMITRIPTYLINE [Suspect]
     Active Substance: AMITRIPTYLINE
     Indication: PRODUCT USED FOR UNKNOWN INDICATION
     Dosage: 75 MILLIGRAM, QD
     Route: 065
  3. SANSERT [Suspect]
     Active Substance: METHYSERGIDE MALEATE
     Dosage: 6 MILLIGRAM, UNK (RETARTED ON JUNE 24 AND WENT UPTO 10 MG)
     Route: 065
  4. SIBELIUM [FLUNARIZINE DIHYDROCHLORIDE] [Suspect]
     Active Substance: FLUNARIZINE HYDROCHLORIDE
     Indication: PRODUCT USED FOR UNKNOWN INDICATION
     Dosage: UNK
     Route: 065
  5. EPIVAL [DIAZEPAM] [Suspect]
     Active Substance: DIAZEPAM
     Indication: PRODUCT USED FOR UNKNOWN INDICATION
     Route: 065
  6. FEVERFEW [TANACETUM PARTHENIUM] [Suspect]
     Active Substance: FEVERFEW\TANACETUM PARTHENIUM
     Indication: PRODUCT USED FOR UNKNOWN INDICATION
     Dosage: UNK
     Route: 065
  7. AIMOVIG [Suspect]
     Active Substance: ERENUMAB-AOOE
     Indication: PRODUCT USED FOR UNKNOWN INDICATION
     Dosage: UNK
     Route: 065
  8. FIORINAL [ACETYLSALICYLIC ACID;BUTALBITAL;CAFFEINE;PHENACETIN] [Suspect]
     Active Substance: ASPIRIN\BUTALBITAL\CAFFEINE\PHENACETIN
     Indication: PRODUCT USED FOR UNKNOWN INDICATION
     Dosage: 0.5 DOSAGE FORM, AS NECESSARY (0.5 DF, PRN)
     Route: 065
  9. TORADOL [Suspect]
     Active Substance: KETOROLAC TROMETHAMINE
     Indication: PRODUCT USED FOR UNKNOWN INDICATION
     Dosage: UNK
     Route: 030
  10. INDERAL LA [Suspect]
     Active Substance: PROPRANOLOL HYDROCHLORIDE
     Indication: PRODUCT USED FOR UNKNOWN INDICATION
     Dosage: 80 MILLIGRAM, QD
     Route: 065
  11. SANSERT [Suspect]
     Active Substance: METHYSERGIDE MALEATE
     Indication: PRODUCT USED FOR UNKNOWN INDICATION
     Dosage: 12 MILLIGRAM, UNK (RETARTED ON 02 FEB AND WENT TO 12 MG AND THEN
     Route: 065
  12. NEURONTIN [Suspect]
     Active Substance: GABAPENTIN
     Indication: PRODUCT USED FOR UNKNOWN INDICATION
     Dosage: 400 MILLIGRAM, TID (MIGHT GO UPTO 800 MG DEPENDING ON
     Route: 065
  13. BELLERGAL [Suspect]
     Active Substance: BELLADONNA\ERGOTAMINE TARTRATE\PHENOBARBITAL
     Indication: PRODUCT USED FOR UNKNOWN INDICATION
     Dosage: UNK
     Route: 065
  14. SANDOMIGRANE [Suspect]
     Active Substance: PIZOTYLINE MALATE
     Indication: PRODUCT USED FOR UNKNOWN INDICATION
     Dosage: UNK
     Route: 065
  15. DEMEROL [Suspect]
     Active Substance: MEPERIDINE HYDROCHLORIDE
     Indication: PRODUCT USED FOR UNKNOWN INDICATION
     Dosage: UNK
     Route: 030

REACTIONS (7)
  - Abdominal pain lower [Unknown]
  - Polyp [Unknown]
  - Abdominal discomfort [Unknown]
  - Haematochezia [Unknown]
  - Headache [Unknown]
  - Weight increased [Unknown]
  - Migraine [Recovering/Resolving]
